FAERS Safety Report 10088384 (Version 1)
Quarter: 2014Q2

REPORT INFORMATION
  Report Type: Spontaneous
  Country: US (occurrence: US)
  Receive Date: 20140421
  Receipt Date: 20140421
  Transmission Date: 20141212
  Serious: No
  Sender: FDA-Public Use
  Company Number: US-BIOGENIDEC-2014BI030972

PATIENT
  Sex: Female

DRUGS (11)
  1. TECFIDERA [Suspect]
     Indication: MULTIPLE SCLEROSIS
     Route: 048
     Dates: start: 20140327
  2. XANAX [Concomitant]
  3. AMITRIPTYLINE [Concomitant]
  4. BACLOFEN [Concomitant]
  5. CLONAZEPAM [Concomitant]
  6. FAMOTIDINE [Concomitant]
  7. FERROUS SULFATE [Concomitant]
  8. FLUOXETINE [Concomitant]
  9. FOLIC ACID [Concomitant]
  10. VITAMIN D [Concomitant]
  11. NORCO [Concomitant]

REACTIONS (1)
  - Urticaria [Unknown]
